FAERS Safety Report 5640930-6 (Version None)
Quarter: 2008Q1

REPORT INFORMATION
  Report Type: 
  Country: None (occurrence: None)
  Receive Date: 20080227
  Receipt Date: 20080201
  Transmission Date: 20080703
  Serious: Yes (Other)
  Sender: FDA-Public Use
  Company Number: JP-ROCHE-540851

PATIENT
  Age: 3 Year
  Sex: Male
  Weight: 16 kg

DRUGS (3)
  1. TAMIFLU [Suspect]
     Indication: INFLUENZA
     Dosage: DRUG REPORTED AS TAMIFLU DRY SYRUP 3%
     Route: 048
     Dates: start: 20080104, end: 20080105
  2. ASVERIN [Concomitant]
     Route: 048
     Dates: start: 20080104, end: 20080105
  3. PULSMARIN A [Concomitant]
     Route: 048
     Dates: start: 20080104, end: 20080105

REACTIONS (1)
  - ABNORMAL BEHAVIOUR [None]
